FAERS Safety Report 10440661 (Version 1)
Quarter: 2014Q3

REPORT INFORMATION
  Report Type: Spontaneous
  Country: US (occurrence: None)
  Receive Date: 20140908
  Receipt Date: 20140908
  Transmission Date: 20150326
  Serious: Yes (Hospitalization)
  Sender: FDA-Public Use
  Company Number: None

PATIENT
  Age: 66 Year
  Sex: Male
  Weight: 80.8 kg

DRUGS (1)
  1. VICTOZA [Suspect]
     Active Substance: LIRAGLUTIDE
     Indication: DIABETES MELLITUS
     Route: 058

REACTIONS (8)
  - Vomiting [None]
  - Blood creatinine abnormal [None]
  - Fatigue [None]
  - Pain [None]
  - Malaise [None]
  - Anuria [None]
  - Gastrooesophageal reflux disease [None]
  - Nausea [None]

NARRATIVE: CASE EVENT DATE: 20140801
